FAERS Safety Report 5218584-2 (Version None)
Quarter: 2007Q1

REPORT INFORMATION
  Report Type: 
  Country: None (occurrence: None)
  Receive Date: 20061130
  Receipt Date: 20060720
  Transmission Date: 20070707
  Serious: Yes (Hospitalization)
  Sender: FDA-Public Use
  Company Number: US200606000639

PATIENT
  Sex: Female
  Weight: 111.1 kg

DRUGS (6)
  1. ZYPREXA [Suspect]
     Dosage: 10 MG, ORAL
     Route: 048
     Dates: start: 19980901
  2. ABILIFY [Concomitant]
  3. HALDOL SOLUTAB [Concomitant]
  4. DEPAKOTE [Concomitant]
  5. NAVANE [Concomitant]
  6. GLUCOPHAGE [Concomitant]

REACTIONS (4)
  - DIABETES MELLITUS [None]
  - DIABETIC COMA [None]
  - KETOACIDOSIS [None]
  - KETOSIS [None]
